FAERS Safety Report 7441062-7 (Version None)
Quarter: 2011Q2

REPORT INFORMATION
  Report Type: 
  Country: None (occurrence: None)
  Receive Date: 20110427
  Receipt Date: 20110419
  Transmission Date: 20111010
  Serious: Yes (Other)
  Sender: FDA-Public Use
  Company Number: DE-AMGEN-DEUSP2011007212

PATIENT
  Age: 57 Year
  Sex: Female
  Weight: 53 kg

DRUGS (4)
  1. PROLIA [Suspect]
     Indication: OSTEOPOROSIS
     Dosage: 60 MG, ONE TIME DOSE
     Route: 058
     Dates: start: 20100901
  2. MUTAFLOR [Concomitant]
     Route: 048
  3. PANTOPRAZOL                        /01263202/ [Concomitant]
     Indication: ABDOMINAL PAIN UPPER
     Dosage: UNK UNK, QD
     Route: 048
  4. IRON [Concomitant]
     Route: 048

REACTIONS (3)
  - HYPOCALCAEMIA [None]
  - PARAESTHESIA [None]
  - HYPERPARATHYROIDISM SECONDARY [None]
